FAERS Safety Report 5001656-5 (Version None)
Quarter: 2006Q2

REPORT INFORMATION
  Report Type: 
  Country: None (occurrence: None)
  Receive Date: 20060515
  Receipt Date: 20060504
  Transmission Date: 20061013
  Serious: Yes (Other)
  Sender: FDA-Public Use
  Company Number: PHBS2006BE06588

PATIENT
  Sex: Female

DRUGS (1)
  1. AREDIA [Suspect]
     Route: 065

REACTIONS (3)
  - DENTAL EXAMINATION ABNORMAL [None]
  - OSTEONECROSIS [None]
  - TOOTH INFECTION [None]
